FAERS Safety Report 23383770 (Version 2)
Quarter: 2024Q1

REPORT INFORMATION
  Report Type: Spontaneous
  Country: US (occurrence: US)
  Receive Date: 20240109
  Receipt Date: 20240319
  Transmission Date: 20240410
  Serious: No
  Sender: FDA-Public Use
  Company Number: US-SA-SAC20240105000323

PATIENT
  Age: 30 Year
  Sex: Female

DRUGS (2)
  1. DUPIXENT [Suspect]
     Active Substance: DUPILUMAB
     Indication: Eczema
     Dosage: 600MG; 1X
     Route: 058
     Dates: start: 20231129, end: 20231129
  2. DUPIXENT [Suspect]
     Active Substance: DUPILUMAB
     Dosage: 300MG; EVERY 2 WEEKS
     Route: 058
     Dates: start: 20231213

REACTIONS (6)
  - Pruritus [Unknown]
  - Eczema [Unknown]
  - Incorrect product administration duration [Unknown]
  - Eye pruritus [Unknown]
  - Condition aggravated [Unknown]
  - Dry eye [Unknown]
